FAERS Safety Report 5957139-9 (Version None)
Quarter: 2008Q4

REPORT INFORMATION
  Report Type: 
  Country: None (occurrence: None)
  Receive Date: 20081117
  Receipt Date: 20081117
  Transmission Date: 20090506
  Serious: Yes (Disabling)
  Sender: FDA-Public Use
  Company Number: None

PATIENT
  Age: 54 Year
  Sex: Female
  Weight: 67.1324 kg

DRUGS (1)
  1. LEVAQUIN [Suspect]
     Indication: DIVERTICULITIS
     Dosage: 1 1 PER DAY
     Dates: start: 20080725, end: 20080802

REACTIONS (6)
  - FATIGUE [None]
  - INSOMNIA [None]
  - MALAISE [None]
  - MUSCULOSKELETAL PAIN [None]
  - NEGATIVE THOUGHTS [None]
  - PAIN [None]
